FAERS Safety Report 8405207-4 (Version None)
Quarter: 2012Q2

REPORT INFORMATION
  Report Type: 
  Country: None (occurrence: None)
  Receive Date: 20120603
  Receipt Date: 20120530
  Transmission Date: 20120825
  Serious: Yes (Hospitalization)
  Sender: FDA-Public Use
  Company Number: JP-BAYER-2012-054037

PATIENT
  Age: 70 Year
  Sex: Male

DRUGS (2)
  1. ASPIRIN [Suspect]
     Route: 048
  2. PLAVIX [Suspect]
     Route: 048

REACTIONS (1)
  - SUBDURAL HAEMATOMA [None]
